FAERS Safety Report 8984575 (Version 2)
Quarter: 2013Q1

REPORT INFORMATION
  Report Type: Spontaneous
  Country: US (occurrence: US)
  Receive Date: 20121225
  Receipt Date: 20130207
  Transmission Date: 20140127
  Serious: No
  Sender: FDA-Public Use
  Company Number: US-009507513-1212USA009628

PATIENT
  Age: 55 Year
  Sex: Female
  Weight: 97.96 kg

DRUGS (11)
  1. VICTRELIS [Suspect]
     Dosage: 800 MG (4-200 MG CAPS BY MOUTH THREE TIMES A DAY (EVERY 7-9 HOURS), TO START ON WEEK 5), TID
     Route: 048
  2. RIBAVIRIN [Suspect]
     Dosage: UNK
  3. PEGASYS [Suspect]
     Dosage: STRENGTH 180 MICROGRAMS/M
  4. JANUVIA [Concomitant]
  5. NORVASC [Concomitant]
  6. METFORMIN [Concomitant]
  7. LISINOPRIL [Concomitant]
  8. GLYBURIDE [Concomitant]
  9. WELLBUTRIN [Concomitant]
  10. IRON (UNSPECIFIED) [Concomitant]
  11. PROCRIT [Suspect]

REACTIONS (3)
  - Blood iron decreased [Unknown]
  - Balance disorder [Unknown]
  - Asthenia [Unknown]
